FAERS Safety Report 21727358 (Version 1)
Quarter: 2022Q4

REPORT INFORMATION
  Report Type: Spontaneous
  Country: AU (occurrence: AU)
  Receive Date: 20221214
  Receipt Date: 20221214
  Transmission Date: 20230113
  Serious: Yes (Other)
  Sender: FDA-Public Use
  Company Number: AU-BAXTER-2022BAX026456

PATIENT
  Sex: Male

DRUGS (20)
  1. DOXORUBICIN [Suspect]
     Active Substance: DOXORUBICIN
     Indication: Follicular lymphoma
     Dosage: 6 CYCLES OF R-CHOP-14
     Route: 065
     Dates: start: 2016
  2. CYCLOPHOSPHAMIDE [Suspect]
     Active Substance: CYCLOPHOSPHAMIDE
     Indication: Follicular lymphoma
     Dosage: 6 CYCLES OF R-CHOP-14
     Route: 065
     Dates: start: 2016
  3. IFOSFAMIDE [Suspect]
     Active Substance: IFOSFAMIDE
     Indication: Disease progression
     Dosage: R-ICE REGIMEN
     Route: 065
     Dates: start: 2020
  4. IFOSFAMIDE [Suspect]
     Active Substance: IFOSFAMIDE
     Indication: Follicular lymphoma
  5. RITUXIMAB [Suspect]
     Active Substance: RITUXIMAB
     Indication: Follicular lymphoma
     Dosage: 6 CYCLES OF R-CHOP-14, PLUS 2 YEARS OF MAINTAINENCE RITUXIMAB AFTER HIGH-DOSE METHOTREXATE
     Route: 065
     Dates: start: 2016
  6. RITUXIMAB [Suspect]
     Active Substance: RITUXIMAB
     Indication: Disease progression
     Dosage: R-ICE REGIMEN
     Route: 065
     Dates: start: 2020
  7. RITUXIMAB [Suspect]
     Active Substance: RITUXIMAB
     Indication: Diffuse large B-cell lymphoma
     Dosage: UNK
     Route: 065
     Dates: start: 2021
  8. VINCRISTINE [Suspect]
     Active Substance: VINCRISTINE
     Indication: Follicular lymphoma
     Dosage: 6 CYCLES OF R-CHOP-14
     Route: 065
     Dates: start: 2016
  9. PREDNISONE [Suspect]
     Active Substance: PREDNISONE
     Indication: Follicular lymphoma
     Dosage: 6 CYCLES OF R-CHOP-14
     Route: 065
     Dates: start: 2016
  10. METHOTREXATE [Suspect]
     Active Substance: METHOTREXATE
     Indication: Follicular lymphoma
     Dosage: AFTER R-CHOP 2 CYCLES OF HIGH DOSE METHOTREXATE
     Route: 065
     Dates: start: 2016
  11. OBINUTUZUMAB [Suspect]
     Active Substance: OBINUTUZUMAB
     Indication: Follicular lymphoma
     Dosage: UNK
     Route: 065
     Dates: start: 2019
  12. BENDAMUSTINE [Suspect]
     Active Substance: BENDAMUSTINE
     Indication: Follicular lymphoma
     Dosage: UNK
     Route: 065
     Dates: start: 2019
  13. IDELALISIB [Suspect]
     Active Substance: IDELALISIB
     Indication: Follicular lymphoma
     Dosage: UNK
     Route: 065
     Dates: start: 2019
  14. IDELALISIB [Suspect]
     Active Substance: IDELALISIB
     Indication: Disease progression
  15. CARBOPLATIN [Suspect]
     Active Substance: CARBOPLATIN
     Indication: Disease progression
     Dosage: R-ICE REGIMEN
     Route: 065
     Dates: start: 2020
  16. CARBOPLATIN [Suspect]
     Active Substance: CARBOPLATIN
     Indication: Follicular lymphoma
  17. ETOPOSIDE [Suspect]
     Active Substance: ETOPOSIDE
     Indication: Disease progression
     Dosage: R-ICE REGIMEN
     Route: 065
     Dates: start: 2020
  18. LENALIDOMIDE [Suspect]
     Active Substance: LENALIDOMIDE
     Indication: Diffuse large B-cell lymphoma
     Dosage: UNK
     Route: 065
     Dates: start: 2021
  19. SELINEXOR [Suspect]
     Active Substance: SELINEXOR
     Indication: Disease progression
     Dosage: UNK
     Route: 065
     Dates: start: 2022
  20. SELINEXOR [Suspect]
     Active Substance: SELINEXOR
     Indication: Diffuse large B-cell lymphoma

REACTIONS (6)
  - Diffuse large B-cell lymphoma [Unknown]
  - Diffuse large B-cell lymphoma refractory [Unknown]
  - Therapy non-responder [Unknown]
  - Therapy partial responder [Unknown]
  - Disease progression [Recovered/Resolved]
  - Disease progression [Recovered/Resolved]

NARRATIVE: CASE EVENT DATE: 20190101
